FAERS Safety Report 18541147 (Version 7)
Quarter: 2021Q1

REPORT INFORMATION
  Report Type: Spontaneous
  Country: US (occurrence: US)
  Receive Date: 20201124
  Receipt Date: 20210317
  Transmission Date: 20210419
  Serious: No
  Sender: FDA-Public Use
  Company Number: US-PFIZER INC-2020013033

PATIENT
  Age: 45 Year
  Sex: Female
  Weight: 59 kg

DRUGS (1)
  1. DEPO?PROVERA [Suspect]
     Active Substance: MEDROXYPROGESTERONE ACETATE
     Indication: CONTRACEPTION
     Dosage: 150MG, EVERY 11 WEEKS
     Route: 030

REACTIONS (6)
  - Migraine [Unknown]
  - Back disorder [Unknown]
  - Dysmenorrhoea [Unknown]
  - Feeling abnormal [Unknown]
  - Product administered at inappropriate site [Unknown]
  - Off label use [Unknown]
